FAERS Safety Report 23267295 (Version 2)
Quarter: 2024Q1

REPORT INFORMATION
  Report Type: Spontaneous
  Country: US (occurrence: US)
  Receive Date: 20231206
  Receipt Date: 20240226
  Transmission Date: 20240410
  Serious: Yes (Other)
  Sender: FDA-Public Use
  Company Number: US-PFIZER INC-PV202300196498

PATIENT
  Age: 86 Year
  Sex: Female
  Weight: 40.4 kg

DRUGS (1)
  1. IBRANCE [Suspect]
     Active Substance: PALBOCICLIB
     Dosage: 75 MG, CYCLIC (DAYS 1 THROUGH 21, THEN 7 DAYS OFF OF A 28 DAY CYCLE)
     Route: 048

REACTIONS (14)
  - Carcinoembryonic antigen increased [Unknown]
  - Red blood cell sedimentation rate increased [Unknown]
  - Red blood cell count decreased [Unknown]
  - Haematocrit decreased [Unknown]
  - Mean cell volume increased [Unknown]
  - Neutrophil count decreased [Unknown]
  - Lymphocyte count decreased [Unknown]
  - Blood urea increased [Unknown]
  - Blood creatinine increased [Unknown]
  - White blood cell count decreased [Unknown]
  - Haemoglobin decreased [Unknown]
  - Bone pain [Unknown]
  - Glomerular filtration rate decreased [Unknown]
  - Mean cell haemoglobin increased [Unknown]

NARRATIVE: CASE EVENT DATE: 20231120
